FAERS Safety Report 8260374-0 (Version None)
Quarter: 2012Q2

REPORT INFORMATION
  Report Type: 
  Country: None (occurrence: None)
  Receive Date: 20120404
  Receipt Date: 20120328
  Transmission Date: 20120825
  Serious: Yes (Other)
  Sender: FDA-Public Use
  Company Number: US-FRI-1000028727

PATIENT
  Age: 80 Year
  Sex: Male

DRUGS (15)
  1. MAGNESIUM [Concomitant]
  2. FISH OIL [Concomitant]
  3. FAMOTIDINE [Concomitant]
     Dosage: 20 MG
     Route: 048
  4. CALCIUM CARBONATE [Concomitant]
     Dosage: 1200 MG
     Route: 048
  5. SPIRIVA [Concomitant]
     Indication: CHRONIC OBSTRUCTIVE PULMONARY DISEASE
  6. WARFARIN SODIUM [Concomitant]
     Indication: ATRIAL FIBRILLATION
     Dosage: 4 MG
     Route: 048
  7. CRESTOR [Concomitant]
     Dosage: 5 MG
     Route: 048
  8. VITAMIN B-12 [Concomitant]
  9. FLUTICASONE PROPIONATE [Concomitant]
  10. METOPROLOL TARTRATE [Concomitant]
     Dosage: 50 MG
     Route: 048
  11. BISMUTH SUBSALICYLATE [Suspect]
     Indication: NAUSEA
  12. ASPIRIN [Concomitant]
     Dosage: 81 MG
     Route: 048
  13. FLUOXETINE [Concomitant]
     Dosage: 20 MG
     Route: 048
  14. DALIRESP [Suspect]
     Indication: CHRONIC OBSTRUCTIVE PULMONARY DISEASE
     Dosage: 500 MCG
     Route: 048
     Dates: start: 20120201
  15. DIGOXIN [Concomitant]
     Indication: ATRIAL FIBRILLATION
     Dosage: 125 MCG
     Route: 048

REACTIONS (3)
  - DIZZINESS [None]
  - MELAENA [None]
  - NAUSEA [None]
